FAERS Safety Report 5367306-3 (Version None)
Quarter: 2007Q2

REPORT INFORMATION
  Report Type: 
  Country: None (occurrence: None)
  Receive Date: 20070622
  Receipt Date: 20060707
  Transmission Date: 20071010
  Serious: No
  Sender: FDA-Public Use
  Company Number: US-ASTRAZENECA-2006UW09075

PATIENT
  Age: 59 Year
  Sex: Female
  Weight: 81.6 kg

DRUGS (9)
  1. PULMICORT [Suspect]
     Indication: ASTHMA
     Dosage: 1 PUFF TO 4 PUFF QD
     Route: 055
     Dates: start: 20020101
  2. BECONASE [Concomitant]
     Dosage: 2 SPRAY EACH NOSTRIL
  3. SINGULAIR [Concomitant]
     Indication: BRONCHITIS
  4. ASCORBIC ACID [Concomitant]
  5. CQ10 [Concomitant]
  6. SINGULAIR [Concomitant]
  7. ALLEGRA [Concomitant]
  8. SEREVENT [Concomitant]
  9. ALBUTEROL [Concomitant]
     Indication: WHEEZING

REACTIONS (6)
  - BLOOD PRESSURE INCREASED [None]
  - DYSPHONIA [None]
  - DYSPNOEA [None]
  - FATIGUE [None]
  - MOBILITY DECREASED [None]
  - RHINORRHOEA [None]
